FAERS Safety Report 25047478 (Version 2)
Quarter: 2025Q1

REPORT INFORMATION
  Report Type: Spontaneous
  Country: BE (occurrence: BE)
  Receive Date: 20250306
  Receipt Date: 20250327
  Transmission Date: 20250409
  Serious: Yes (Other)
  Sender: ELI LILLY AND COMPANY
  Company Number: BE-ELI_LILLY_AND_COMPANY-BE202502014783

PATIENT
  Age: 43 Year
  Sex: Female
  Weight: 53 kg

DRUGS (9)
  1. OMVOH [Suspect]
     Active Substance: MIRIKIZUMAB-MRKZ
     Indication: Colitis ulcerative
     Route: 042
     Dates: start: 202407
  2. OMVOH [Suspect]
     Active Substance: MIRIKIZUMAB-MRKZ
     Route: 042
     Dates: start: 202408
  3. OMVOH [Suspect]
     Active Substance: MIRIKIZUMAB-MRKZ
     Route: 042
     Dates: start: 202409
  4. OMVOH [Suspect]
     Active Substance: MIRIKIZUMAB-MRKZ
     Route: 042
     Dates: start: 202502
  5. OMVOH [Suspect]
     Active Substance: MIRIKIZUMAB-MRKZ
     Indication: Colitis ulcerative
     Route: 058
     Dates: start: 202410
  6. OMVOH [Suspect]
     Active Substance: MIRIKIZUMAB-MRKZ
     Route: 058
     Dates: start: 202411
  7. OMVOH [Suspect]
     Active Substance: MIRIKIZUMAB-MRKZ
     Route: 058
     Dates: start: 202412
  8. OMVOH [Suspect]
     Active Substance: MIRIKIZUMAB-MRKZ
     Route: 058
     Dates: start: 202501
  9. ASAMOVON [Concomitant]
     Indication: Product used for unknown indication
     Route: 065

REACTIONS (2)
  - Colitis ulcerative [Unknown]
  - Drug ineffective [Unknown]

NARRATIVE: CASE EVENT DATE: 20250101
